FAERS Safety Report 20319329 (Version 1)
Quarter: 2022Q1

REPORT INFORMATION
  Report Type: Spontaneous
  Country: US (occurrence: US)
  Receive Date: 20220110
  Receipt Date: 20220110
  Transmission Date: 20220423
  Serious: No
  Sender: FDA-Public Use
  Company Number: US-PFIZER INC-202101358391

PATIENT
  Age: 66 Year
  Sex: Female
  Weight: 64.41 kg

DRUGS (1)
  1. CHANTIX [Suspect]
     Active Substance: VARENICLINE TARTRATE
     Indication: Smoking cessation therapy
     Dosage: 1/2 OF A 1MG TABLET ONCE IN THE MORNING AND 1 IN THE EVENING
     Dates: end: 202101

REACTIONS (7)
  - Nausea [Not Recovered/Not Resolved]
  - Abnormal dreams [Recovering/Resolving]
  - Headache [Recovering/Resolving]
  - Illness [Unknown]
  - Feeling abnormal [Not Recovered/Not Resolved]
  - Poor quality product administered [Unknown]
  - Recalled product administered [Unknown]

NARRATIVE: CASE EVENT DATE: 20201101
